FAERS Safety Report 9753262 (Version 2)
Quarter: 2013Q4

REPORT INFORMATION
  Report Type: Spontaneous
  Country: US (occurrence: US)
  Receive Date: 20131213
  Receipt Date: 20131213
  Transmission Date: 20140711
  Serious: No
  Sender: FDA-Public Use
  Company Number: US-GILEAD-2010-0027316

PATIENT
  Age: 48 Year
  Sex: Female

DRUGS (10)
  1. LETAIRIS [Suspect]
     Indication: PULMONARY ARTERIAL HYPERTENSION
     Route: 048
     Dates: start: 20100217
  2. BUDESONIDE/FORMOTEROL [Concomitant]
  3. CITALOPRAM [Concomitant]
  4. CLONAZEPAM [Concomitant]
  5. DOCUSATE [Concomitant]
  6. ESOMEPRAZOLE [Concomitant]
  7. INSULIN DETEMIR [Concomitant]
  8. IPRATROPIUM/ALBUTEROL [Concomitant]
  9. NITROGLYCERIN [Concomitant]
  10. ISOSORBIDE DINITRATE [Concomitant]

REACTIONS (4)
  - Pruritus [Recovered/Resolved]
  - Chromaturia [Unknown]
  - Urine odour abnormal [Unknown]
  - Cardiac flutter [Unknown]
